FAERS Safety Report 6209823-X (Version None)
Quarter: 2009Q2

REPORT INFORMATION
  Report Type: 
  Country: None (occurrence: None)
  Receive Date: 20090601
  Receipt Date: 20090526
  Transmission Date: 20091009
  Serious: Yes (Death, Hospitalization, Other)
  Sender: FDA-Public Use
  Company Number: PHHY2009FR13387

PATIENT
  Sex: Female
  Weight: 42 kg

DRUGS (11)
  1. ACLASTA [Suspect]
     Dosage: UNK
     Route: 042
     Dates: start: 20090402
  2. CO-TAREG [Suspect]
  3. VOLTAREN [Suspect]
  4. TOFRANIL [Suspect]
     Dosage: UNK
     Dates: start: 20050101
  5. VALIUM [Suspect]
  6. LAMALINE [Suspect]
  7. TOPALGIC [Concomitant]
     Dosage: UNK
     Dates: start: 20050101
  8. VOLTAREN [Concomitant]
     Dosage: UNK
     Dates: start: 20050101
  9. COAPROVEL [Concomitant]
     Dosage: UNK
     Dates: start: 20050101
  10. NEURONTIN [Concomitant]
     Dosage: UNK
     Dates: start: 20050101
  11. PARACETAMOL [Concomitant]

REACTIONS (28)
  - ACUTE RESPIRATORY DISTRESS SYNDROME [None]
  - ACUTE RESPIRATORY FAILURE [None]
  - AGITATION [None]
  - ANXIETY [None]
  - BRAIN NATRIURETIC PEPTIDE INCREASED [None]
  - C-REACTIVE PROTEIN INCREASED [None]
  - CARDIAC FAILURE [None]
  - COR PULMONALE CHRONIC [None]
  - CORONARY ARTERY DISEASE [None]
  - CREATININE RENAL CLEARANCE DECREASED [None]
  - CYANOSIS [None]
  - HYPOKINESIA [None]
  - INCOHERENT [None]
  - INFECTION [None]
  - MALAISE [None]
  - MULTI-ORGAN FAILURE [None]
  - MYOCARDIAL INFARCTION [None]
  - OEDEMA PERIPHERAL [None]
  - PAIN [None]
  - RALES [None]
  - RENAL IMPAIRMENT [None]
  - RESPIRATORY TRACT INFECTION [None]
  - SEPSIS [None]
  - SHOCK [None]
  - SWELLING FACE [None]
  - TACHYPNOEA [None]
  - TROPONIN INCREASED [None]
  - VASOCONSTRICTION [None]
